FAERS Safety Report 9879138 (Version 3)
Quarter: 2014Q4

REPORT INFORMATION
  Report Type: Spontaneous
  Country: US (occurrence: US)
  Receive Date: 20140206
  Receipt Date: 20141029
  Transmission Date: 20150529
  Serious: Yes (Hospitalization, Other)
  Sender: FDA-Public Use
  Company Number: US-009507513-1401USA014875

PATIENT
  Sex: Female

DRUGS (1)
  1. NUVARING [Suspect]
     Active Substance: ETHINYL ESTRADIOL\ETONOGESTREL
     Indication: PRODUCT USED FOR UNKNOWN INDICATION
     Dosage: UNK
     Route: 067
     Dates: start: 20110609

REACTIONS (6)
  - Blood glucose increased [Unknown]
  - Asthma [Not Recovered/Not Resolved]
  - Respiratory failure [Unknown]
  - Albumin globulin ratio abnormal [Unknown]
  - Pulmonary embolism [Unknown]
  - Anxiety [Unknown]

NARRATIVE: CASE EVENT DATE: 2011
